FAERS Safety Report 7703804-2 (Version None)
Quarter: 2011Q3

REPORT INFORMATION
  Report Type: 
  Country: None (occurrence: None)
  Receive Date: 20110823
  Receipt Date: 20110812
  Transmission Date: 20111222
  Serious: Yes (Hospitalization, Other)
  Sender: FDA-Public Use
  Company Number: US-ROCHE-552216

PATIENT
  Sex: Female
  Weight: 63.5 kg

DRUGS (6)
  1. SPIRONOLACTONE [Concomitant]
     Indication: ACNE
     Route: 065
     Dates: start: 19990806
  2. ACCUTANE [Suspect]
     Indication: ACNE
     Dosage: THE PATIENT WAS DISPENSED ACCUTANE 20 MG CAPS ON 6 AUGUST 1999.
     Route: 065
     Dates: start: 19990806, end: 19990928
  3. SPIRONOLACTONE [Concomitant]
     Route: 065
     Dates: start: 19990813
  4. ACCUTANE [Suspect]
     Dosage: THE PATIENT WAS DISPENSED ACCUTANE 40 MG CAPS ON 3 OCTOBER 1999.
     Route: 065
     Dates: start: 19990929, end: 20000114
  5. SPIRONOLACTONE [Concomitant]
     Route: 065
     Dates: start: 19990820
  6. ACYCLOVIR [Concomitant]
     Indication: HERPES SIMPLEX
     Route: 048
     Dates: start: 19990806

REACTIONS (14)
  - HEADACHE [None]
  - EPISTAXIS [None]
  - INFLAMMATORY BOWEL DISEASE [None]
  - HAEMORRHOIDS [None]
  - XEROSIS [None]
  - DEPRESSION [None]
  - SUICIDAL IDEATION [None]
  - OSTEOARTHRITIS [None]
  - CROHN'S DISEASE [None]
  - LIP DRY [None]
  - ARTHROPATHY [None]
  - IRRITABLE BOWEL SYNDROME [None]
  - COLITIS [None]
  - ECZEMA [None]
